FAERS Safety Report 5863196-0 (Version None)
Quarter: 2008Q3

REPORT INFORMATION
  Report Type: 
  Country: None (occurrence: None)
  Receive Date: 20080828
  Receipt Date: 20080825
  Transmission Date: 20090109
  Serious: Yes (Life-Threatening, Hospitalization)
  Sender: FDA-Public Use
  Company Number: NL-ASTRAZENECA-2008AC02274

PATIENT
  Age: 43 Year
  Sex: Female

DRUGS (2)
  1. SEROQUEL [Suspect]
     Indication: PERSONALITY DISORDER
     Route: 048
     Dates: start: 20050801, end: 20050101
  2. SEROQUEL [Suspect]
     Route: 048
     Dates: start: 20051101

REACTIONS (1)
  - ACUTE LEUKAEMIA [None]
